FAERS Safety Report 20766685 (Version 2)
Quarter: 2023Q1

REPORT INFORMATION
  Report Type: Spontaneous
  Country: GB (occurrence: GB)
  Receive Date: 20220428
  Receipt Date: 20230113
  Transmission Date: 20230418
  Serious: Yes (Life-Threatening, Hospitalization)
  Sender: FDA-Public Use
  Company Number: GB-STRIDES ARCOLAB LIMITED-2022SP004582

PATIENT
  Age: 18 Year
  Sex: Male

DRUGS (5)
  1. DIAZEPAM [Suspect]
     Active Substance: DIAZEPAM
     Indication: Product used for unknown indication
     Dosage: UNK
     Route: 065
  2. ETONITAZENE [Suspect]
     Active Substance: ETONITAZENE
     Indication: Product used for unknown indication
     Dosage: UNK
     Route: 065
  3. BROMAZEPAM [Suspect]
     Active Substance: BROMAZEPAM
     Indication: Product used for unknown indication
     Dosage: UNK
     Route: 065
  4. METHADONE [Suspect]
     Active Substance: METHADONE HYDROCHLORIDE
     Indication: Product used for unknown indication
     Dosage: UNK
     Route: 065
  5. PERCOCET [Suspect]
     Active Substance: ACETAMINOPHEN\OXYCODONE HYDROCHLORIDE
     Indication: Product used for unknown indication
     Dosage: 2 DOSAGE FORM (PURCHASED VIA DARK WEB, A PREPARATION NOT PRESCRIBED IN UK )
     Route: 065

REACTIONS (13)
  - Unresponsive to stimuli [Unknown]
  - Cyanosis [Unknown]
  - Pulseless electrical activity [Unknown]
  - Sinus tachycardia [Unknown]
  - Hypoxia [Unknown]
  - Respiratory acidosis [Unknown]
  - Depressed level of consciousness [Unknown]
  - Miosis [Unknown]
  - Respiratory depression [Unknown]
  - Rhabdomyolysis [Unknown]
  - Vomiting [Unknown]
  - Drug abuse [Unknown]
  - Toxicity to various agents [Unknown]

NARRATIVE: CASE EVENT DATE: 20210701
